FAERS Safety Report 23688784 (Version 1)
Quarter: 2024Q1

REPORT INFORMATION
  Report Type: Report from Study
  Country: US (occurrence: US)
  Receive Date: 20240329
  Receipt Date: 20240329
  Transmission Date: 20240409
  Serious: Yes (Other)
  Sender: FDA-Public Use
  Company Number: US-GILEAD-2023-0649931

PATIENT
  Age: 34 Year
  Sex: Female

DRUGS (7)
  1. AMBRISENTAN [Suspect]
     Active Substance: AMBRISENTAN
     Indication: Pulmonary arterial hypertension
     Dosage: 10 MG, QD
     Route: 065
     Dates: start: 201711
  2. AMBRISENTAN [Suspect]
     Active Substance: AMBRISENTAN
     Dosage: 10 MG, QD
     Route: 065
     Dates: start: 202012
  3. TREPROSTINIL [Suspect]
     Active Substance: TREPROSTINIL
     Indication: Pulmonary arterial hypertension
     Dosage: 110 UG, QD
     Route: 042
     Dates: start: 202207
  4. TREPROSTINIL [Suspect]
     Active Substance: TREPROSTINIL
     Dosage: 110 ML, QD
     Route: 042
     Dates: start: 202207
  5. TREPROSTINIL [Suspect]
     Active Substance: TREPROSTINIL
     Dosage: 125 NANOGRAM MINUTE
     Route: 065
     Dates: start: 202206
  6. SILDENAFIL CITRATE [Concomitant]
     Active Substance: SILDENAFIL CITRATE
     Indication: Pulmonary arterial hypertension
     Dosage: 80 MG, TID
     Route: 065
     Dates: start: 202008
  7. SILDENAFIL CITRATE [Concomitant]
     Active Substance: SILDENAFIL CITRATE
     Dosage: 80 MG, TID
     Route: 065
     Dates: start: 202103

REACTIONS (7)
  - Pulmonary arterial hypertension [Unknown]
  - Diarrhoea [Not Recovered/Not Resolved]
  - Flushing [Not Recovered/Not Resolved]
  - Headache [Not Recovered/Not Resolved]
  - Ill-defined disorder [Not Recovered/Not Resolved]
  - Blister [Not Recovered/Not Resolved]
  - Pruritus [Not Recovered/Not Resolved]

NARRATIVE: CASE EVENT DATE: 20231102
